FAERS Safety Report 4379893-2 (Version None)
Quarter: 2004Q2

REPORT INFORMATION
  Report Type: 
  Country: None (occurrence: None)
  Receive Date: 20040614
  Receipt Date: 20040610
  Transmission Date: 20050107
  Serious: Yes (Hospitalization)
  Sender: FDA-Public Use
  Company Number: 207098

PATIENT
  Age: 31 Year
  Sex: Female

DRUGS (8)
  1. HERCEPTIN [Suspect]
     Indication: BREAST CANCER
     Dosage: SEE IMAGE
     Route: 042
  2. TAXOTERE [Suspect]
     Indication: BREAST CANCER
     Dosage: 170 MG, Q3W
  3. DEXAMETHASONE [Concomitant]
  4. NAVOBAN (TROPISETRON HYDROCHLORIDE) [Concomitant]
  5. ACETAMINOPHEN [Concomitant]
  6. NEUPOGEN [Concomitant]
  7. ROCEPHIN [Concomitant]
  8. HERCEPTIN [Suspect]
     Dosage: 2 MG/KG, 1/WEEK, INTRAVENOUS
     Route: 042

REACTIONS (9)
  - APHTHOUS STOMATITIS [None]
  - BONE PAIN [None]
  - FATIGUE [None]
  - FEBRILE NEUTROPENIA [None]
  - MASTICATION DISORDER [None]
  - MYALGIA [None]
  - ODYNOPHAGIA [None]
  - PAIN [None]
  - RHINITIS [None]
